FAERS Safety Report 11839173 (Version 1)
Quarter: 2015Q4

REPORT INFORMATION
  Report Type: Spontaneous
  Country: FR (occurrence: FR)
  Receive Date: 20151216
  Receipt Date: 20151216
  Transmission Date: 20160305
  Serious: Yes (Hospitalization)
  Sender: FDA-Public Use
  Company Number: FR-009507513-1512FRA006784

PATIENT
  Age: 69 Year
  Sex: Male

DRUGS (2)
  1. PIPERACILLIN TAZOBACTAM FRESENIUS KABI [Concomitant]
     Dosage: UNK
  2. INVANZ [Suspect]
     Active Substance: ERTAPENEM SODIUM
     Indication: KLEBSIELLA BACTERAEMIA
     Dosage: UNK
     Route: 042
     Dates: start: 20150226, end: 20150308

REACTIONS (4)
  - Abnormal behaviour [Recovered/Resolved]
  - Hallucination, visual [Recovered/Resolved]
  - Hallucination, auditory [Recovered/Resolved]
  - Nightmare [Recovered/Resolved]

NARRATIVE: CASE EVENT DATE: 20150308
